FAERS Safety Report 8356386-9 (Version None)
Quarter: 2012Q2

REPORT INFORMATION
  Report Type: 
  Country: None (occurrence: None)
  Receive Date: 20120514
  Receipt Date: 20120510
  Transmission Date: 20120825
  Serious: Yes (Death, Hospitalization)
  Sender: FDA-Public Use
  Company Number: ES-PFIZER INC-2012114075

PATIENT
  Age: 70 Year
  Sex: Male

DRUGS (6)
  1. FUROSEMIDE [Interacting]
     Dosage: 20 MG, 1X/DAY
     Route: 048
     Dates: start: 20110404, end: 20110412
  2. PROPRANOLOL [Concomitant]
     Indication: VARICES OESOPHAGEAL
     Dosage: 140 MG, UNK
     Route: 048
     Dates: start: 20070101
  3. ALDACTONE [Interacting]
     Dosage: 200 MG, DAILY
     Route: 048
     Dates: start: 20110404, end: 20110412
  4. FUROSEMIDE [Interacting]
     Indication: ASCITES
     Dosage: 40 MG, UNK
     Route: 048
     Dates: start: 20100126, end: 20110403
  5. OMEPRAZOLE [Concomitant]
     Indication: GASTRITIS PROPHYLAXIS
     Dosage: 20 MG, 1X/DAY
     Route: 048
     Dates: start: 20070101
  6. ALDACTONE [Suspect]
     Indication: ASCITES
     Dosage: 100 MG, UNK
     Route: 048
     Dates: start: 20070101, end: 20110403

REACTIONS (4)
  - HYPERKALAEMIA [None]
  - RENAL FAILURE ACUTE [None]
  - DRUG INTERACTION [None]
  - HEPATIC ENCEPHALOPATHY [None]
